FAERS Safety Report 9901222 (Version 3)
Quarter: 2014Q1

REPORT INFORMATION
  Report Type: Report from Study
  Country: FR (occurrence: FR)
  Receive Date: 20140217
  Receipt Date: 20140221
  Transmission Date: 20141002
  Serious: Yes (Death)
  Sender: FDA-Public Use
  Company Number: FR-009507513-1402FRA006542

PATIENT
  Age: 65 Year
  Sex: Male
  Weight: 89 kg

DRUGS (1)
  1. CASPOFUNGIN ACETATE [Suspect]
     Dosage: 70 MG, QD
     Route: 042
     Dates: start: 20140115, end: 20140204

REACTIONS (1)
  - Disease progression [Fatal]
